FAERS Safety Report 20588762 (Version 3)
Quarter: 2024Q3

REPORT INFORMATION
  Report Type: Report from Study
  Country: CO (occurrence: CO)
  Receive Date: 20220314
  Receipt Date: 20240812
  Transmission Date: 20241017
  Serious: Yes (Other)
  Sender: NOVARTIS
  Company Number: CO-NOVARTISPH-NVSC2021CO185718

PATIENT
  Sex: Female
  Weight: 58 kg

DRUGS (1)
  1. KISQALI [Suspect]
     Active Substance: RIBOCICLIB
     Indication: Breast cancer metastatic
     Dosage: 600 MG, QD
     Route: 048
     Dates: start: 20210528

REACTIONS (15)
  - Paralysis [Unknown]
  - Metastasis [Unknown]
  - Metastases to bone [Unknown]
  - Metastases to spine [Unknown]
  - Malaise [Unknown]
  - Eating disorder [Unknown]
  - Skin discolouration [Unknown]
  - Drug intolerance [Unknown]
  - Nausea [Unknown]
  - Vomiting [Unknown]
  - General physical health deterioration [Not Recovered/Not Resolved]
  - Headache [Unknown]
  - Hypoaesthesia [Unknown]
  - Tension [Unknown]
  - Weight decreased [Unknown]
